FAERS Safety Report 7075584-8 (Version None)
Quarter: 2010Q4

REPORT INFORMATION
  Report Type: 
  Country: None (occurrence: None)
  Receive Date: 20101030
  Receipt Date: 20101012
  Transmission Date: 20110411
  Serious: No
  Sender: FDA-Public Use
  Company Number: US-WYE-H18130010

PATIENT
  Age: 88 Year
  Sex: Female
  Weight: 43.13 kg

DRUGS (2)
  1. ADVIL PM [Suspect]
     Indication: INSOMNIA
     Dosage: ONE TO TWO CAPLETS DAILY
     Route: 048
     Dates: start: 20100701
  2. XANAX [Concomitant]

REACTIONS (1)
  - EPISTAXIS [None]
